FAERS Safety Report 26011940 (Version 2)
Quarter: 2025Q4

REPORT INFORMATION
  Report Type: Spontaneous
  Country: PE (occurrence: PE)
  Receive Date: 20251107
  Receipt Date: 20251127
  Transmission Date: 20260117
  Serious: Yes (Hospitalization, Other)
  Sender: VERITY PHARMACEUTICALS INC.
  Company Number: PE-VER-202500001

PATIENT
  Age: 11 Year
  Sex: Female

DRUGS (4)
  1. TRIPTORELIN [Suspect]
     Active Substance: TRIPTORELIN
     Indication: Glanzmann^s disease
     Dosage: UNKNOWN DOSE AT A FREQUENCY OF 1 MONTH, ?DOSE IN 1 MONTH
     Route: 065
  2. ETHINYL ESTRADIOL [Suspect]
     Active Substance: ETHINYL ESTRADIOL
     Indication: Glanzmann^s disease
     Route: 048
  3. LEVONORGESTREL [Suspect]
     Active Substance: LEVONORGESTREL
     Indication: Glanzmann^s disease
     Route: 065
  4. UNSPECIFIED INGREDIENT [Concomitant]
     Active Substance: UNSPECIFIED INGREDIENT
     Route: 065

REACTIONS (3)
  - Congenital uterine anomaly [Unknown]
  - Off label use [Unknown]
  - Condition aggravated [Unknown]
